FAERS Safety Report 10144053 (Version 5)
Quarter: 2014Q3

REPORT INFORMATION
  Report Type: Spontaneous
  Country: US (occurrence: US)
  Receive Date: 20140430
  Receipt Date: 20140926
  Transmission Date: 20150326
  Serious: Yes (Other)
  Sender: FDA-Public Use
  Company Number: US-PFIZER INC-2014119634

PATIENT
  Age: 75 Year
  Sex: Female
  Weight: 42.63 kg

DRUGS (4)
  1. PREDNISONE. [Concomitant]
     Active Substance: PREDNISONE
     Dosage: UNK
  2. MEDIZOLE [Concomitant]
     Dosage: UNK
  3. METHOTREXATE SODIUM. [Suspect]
     Active Substance: METHOTREXATE SODIUM
     Indication: ARTHRITIS
     Dosage: UNK
     Dates: start: 1992, end: 201404
  4. XELJANZ [Suspect]
     Active Substance: TOFACITINIB CITRATE
     Dosage: 5 MG, 2X/DAY (ONE IN THE MORNING AND ONE IN THE EVENING)
     Dates: start: 201401, end: 2014

REACTIONS (8)
  - Tooth abscess [Recovered/Resolved]
  - Haematocrit decreased [Unknown]
  - Feeling abnormal [Unknown]
  - C-reactive protein increased [Unknown]
  - Blood cholesterol abnormal [Unknown]
  - Pain [Unknown]
  - Blood urea nitrogen/creatinine ratio increased [Unknown]
  - Inflammation [Unknown]

NARRATIVE: CASE EVENT DATE: 2014
